FAERS Safety Report 15120595 (Version 1)
Quarter: 2018Q3

REPORT INFORMATION
  Report Type: Spontaneous
  Country: US (occurrence: US)
  Receive Date: 20180709
  Receipt Date: 20180709
  Transmission Date: 20181010
  Serious: No
  Sender: FDA-Public Use
  Company Number: US-HORIZON-VIM-1023-2018

PATIENT
  Age: 63 Year
  Sex: Female

DRUGS (1)
  1. VIMOVO [Suspect]
     Active Substance: ESOMEPRAZOLE MAGNESIUM\NAPROXEN
     Indication: PRODUCT USED FOR UNKNOWN INDICATION
     Dosage: 1 TABLET A DAY (PRESCRIBED: 1 TABLET TWICE A DAY)
     Dates: end: 20180617

REACTIONS (3)
  - Eructation [Unknown]
  - Abdominal pain upper [Unknown]
  - Intentional product use issue [Unknown]
